FAERS Safety Report 14303494 (Version 1)
Quarter: 2017Q4

REPORT INFORMATION
  Report Type: Spontaneous
  Country: FR (occurrence: FR)
  Receive Date: 20171219
  Receipt Date: 20171219
  Transmission Date: 20180321
  Serious: Yes (Other)
  Sender: FDA-Public Use
  Company Number: FR-OTSUKA-2017_025603

PATIENT
  Age: 33 Year
  Sex: Female

DRUGS (2)
  1. ZOLOFT [Concomitant]
     Active Substance: SERTRALINE HYDROCHLORIDE
     Indication: SOCIAL FEAR
     Dosage: 2 DF, QD
     Route: 048
     Dates: start: 2004, end: 2012
  2. ABILIFY [Suspect]
     Active Substance: ARIPIPRAZOLE
     Indication: ANXIETY
     Dosage: 5 MG, QD
     Route: 048
     Dates: start: 20091001

REACTIONS (7)
  - Amnesia [Not Recovered/Not Resolved]
  - Fatigue [Not Recovered/Not Resolved]
  - Prescribed underdose [Unknown]
  - Diplopia [Recovered/Resolved]
  - Vision blurred [Not Recovered/Not Resolved]
  - Headache [Not Recovered/Not Resolved]
  - Product use in unapproved indication [Unknown]

NARRATIVE: CASE EVENT DATE: 2009
